FAERS Safety Report 9298224 (Version 1)
Quarter: 2013Q2

REPORT INFORMATION
  Report Type: Report from Study
  Country: MX (occurrence: MX)
  Receive Date: 20130520
  Receipt Date: 20130520
  Transmission Date: 20140414
  Serious: Yes (Death)
  Sender: FDA-Public Use
  Company Number: MX-SANOFI-AVENTIS-2013SA047480

PATIENT
  Age: 79 Year
  Sex: Female

DRUGS (4)
  1. INSULIN GLARGINE [Suspect]
     Indication: TYPE 2 DIABETES MELLITUS
     Route: 058
     Dates: start: 201208, end: 20130424
  2. SOLOSTAR [Suspect]
     Indication: DEVICE THERAPY
     Dates: start: 201208, end: 20130424
  3. ENALAPRIL [Concomitant]
     Indication: HYPERTENSION
     Route: 048
     Dates: start: 1985, end: 20130424
  4. ANTIHYPERTENSIVES [Concomitant]
     Route: 048
     Dates: end: 20130424

REACTIONS (2)
  - Diabetic complication [Fatal]
  - Hyperglycaemia [Unknown]
